FAERS Safety Report 4352308-6 (Version None)
Quarter: 2004Q2

REPORT INFORMATION
  Report Type: 
  Country: None (occurrence: None)
  Receive Date: 20040503
  Receipt Date: 20040416
  Transmission Date: 20050107
  Serious: Yes (Hospitalization)
  Sender: FDA-Public Use
  Company Number: UK070164

PATIENT
  Age: 74 Year
  Sex: Female
  Weight: 96 kg

DRUGS (4)
  1. ARANESP [Suspect]
     Indication: RENAL FAILURE CHRONIC
     Dosage: 20 MCG, 1 IN 1 WEEKS; SC
     Route: 058
     Dates: start: 20040301
  2. EPOETIN BETA [Concomitant]
  3. FUROSEMIDE [Concomitant]
  4. CALCIDOL [Concomitant]

REACTIONS (4)
  - DERMATITIS ALLERGIC [None]
  - ERYTHEMA MULTIFORME [None]
  - INJECTION SITE RASH [None]
  - PRURITUS [None]
